FAERS Safety Report 11290742 (Version 1)
Quarter: 2015Q3

REPORT INFORMATION
  Report Type: Spontaneous
  Country: US (occurrence: None)
  Receive Date: 20150720
  Receipt Date: 20150720
  Transmission Date: 20151125
  Serious: Yes (Other)
  Sender: FDA-Public Use
  Company Number: None

PATIENT
  Age: 55 Year
  Sex: Male

DRUGS (2)
  1. HYDROCODONE [Concomitant]
     Active Substance: HYDROCODONE
  2. OXYCODONE [Suspect]
     Active Substance: OXYCODONE
     Indication: PAIN
     Dosage: 10/DAY  2 EVERY 3-4 HRS  ORAL
     Route: 048
     Dates: start: 20150612, end: 20150708

REACTIONS (8)
  - Pain [None]
  - Anxiety [None]
  - Rhinorrhoea [None]
  - Drug withdrawal syndrome [None]
  - Malaise [None]
  - Nausea [None]
  - Formication [None]
  - Product quality issue [None]

NARRATIVE: CASE EVENT DATE: 20150612
